FAERS Safety Report 14305760 (Version 1)
Quarter: 2017Q4

REPORT INFORMATION
  Report Type: Spontaneous
  Country: FR (occurrence: FR)
  Receive Date: 20171219
  Receipt Date: 20171219
  Transmission Date: 20180321
  Serious: Yes (Disabling, Other)
  Sender: FDA-Public Use
  Company Number: FR-MYLANLABS-2017M1079554

PATIENT
  Age: 32 Year
  Sex: Male

DRUGS (32)
  1. PAROXETINE. [Suspect]
     Active Substance: PAROXETINE
     Indication: PRODUCT USED FOR UNKNOWN INDICATION
     Dosage: 2 TO 3 WEEKS
     Route: 048
  2. RIVOTRIL [Suspect]
     Active Substance: CLONAZEPAM
     Dosage: 5-8 DROPS
     Route: 065
     Dates: start: 20110328
  3. TETRAZEPAM [Suspect]
     Active Substance: TETRAZEPAM
     Dosage: UNK
     Route: 048
  4. TEMERIT [Suspect]
     Active Substance: NEBIVOLOL
     Dosage: 2 DF, QD
     Route: 048
     Dates: start: 20101115, end: 20110509
  5. UVEDOSE [Concomitant]
     Active Substance: CHOLECALCIFEROL
     Dosage: 1000000 IU
     Route: 065
     Dates: start: 20110219
  6. TANGANIL [Concomitant]
     Active Substance: ACETYLLEUCINE
     Route: 048
     Dates: start: 20110303
  7. NUREFLEX [Concomitant]
     Active Substance: IBUPROFEN
     Route: 048
  8. RIVOTRIL [Suspect]
     Active Substance: CLONAZEPAM
     Dosage: UNK
     Route: 065
  9. RIVOTRIL [Suspect]
     Active Substance: CLONAZEPAM
     Dosage: 15 GTT, UNK
     Route: 065
     Dates: start: 20110303, end: 20110327
  10. TEMERIT [Suspect]
     Active Substance: NEBIVOLOL
     Indication: CARDIAC DISORDER
     Dosage: 2 DF, QD
     Route: 048
     Dates: start: 20110718, end: 201207
  11. TEMERIT [Suspect]
     Active Substance: NEBIVOLOL
     Dosage: 2 DF, UNK
     Route: 048
     Dates: start: 20110510, end: 201207
  12. SOLUPRED [Concomitant]
     Active Substance: PREDNISOLONE
     Route: 048
  13. VALIUM [Concomitant]
     Active Substance: DIAZEPAM
     Route: 051
     Dates: start: 20101115, end: 20101115
  14. DOLIPRANE [Concomitant]
     Active Substance: ACETAMINOPHEN
     Route: 048
     Dates: start: 20101213
  15. ATARAX [Suspect]
     Active Substance: HYDROXYZINE HYDROCHLORIDE
     Indication: PRODUCT USED FOR UNKNOWN INDICATION
     Route: 048
  16. MIOREL (THIOCOLCHICOSIDE) [Concomitant]
     Active Substance: THIOCOLCHICOSIDE
     Route: 048
     Dates: start: 20101210
  17. COVATINE [Concomitant]
     Route: 048
  18. DOLIPRANE [Concomitant]
     Active Substance: ACETAMINOPHEN
     Dosage: 3 DF, UNK
     Route: 048
     Dates: start: 20110201
  19. DOLIPRANE [Concomitant]
     Active Substance: ACETAMINOPHEN
     Route: 048
     Dates: start: 20110328
  20. PRAXINOR (THEODRENALINE + CAFEDRINE) [Concomitant]
     Active Substance: CAFEDRINE\THEODRENALINE
     Route: 048
     Dates: start: 20101127
  21. RIVOTRIL [Suspect]
     Active Substance: CLONAZEPAM
     Indication: NECK PAIN
     Route: 065
  22. TETRAZEPAM [Suspect]
     Active Substance: TETRAZEPAM
     Indication: PRODUCT USED FOR UNKNOWN INDICATION
     Route: 048
  23. TETRAZEPAM [Suspect]
     Active Substance: TETRAZEPAM
     Dosage: UNK
     Route: 048
  24. SEROPRAM (CITALOPRAM HYDROBROMIDE) [Suspect]
     Active Substance: CITALOPRAM HYDROBROMIDE
     Indication: PRODUCT USED FOR UNKNOWN INDICATION
     Route: 048
  25. DI-ANTALVIC [Suspect]
     Active Substance: ACETAMINOPHEN\PROPOXYPHENE HYDROCHLORIDE
     Indication: PAIN
     Route: 048
     Dates: start: 20100606
  26. STRESAM [Concomitant]
     Active Substance: ETIFOXINE
     Route: 048
  27. RIVOTRIL [Suspect]
     Active Substance: CLONAZEPAM
     Dosage: 5-8 DROPS
     Route: 065
     Dates: start: 20110219, end: 20110302
  28. LAROXYL [Suspect]
     Active Substance: AMITRIPTYLINE HYDROCHLORIDE
     Indication: NECK PAIN
     Dosage: 5-8 DROPS
     Route: 065
     Dates: start: 20110219
  29. IXEL [Suspect]
     Active Substance: MILNACIPRAN HYDROCHLORIDE
     Indication: PANIC ATTACK
     Dosage: 2 DF, QD
     Route: 048
     Dates: start: 20110322
  30. MIOREL (THIOCOLCHICOSIDE) [Concomitant]
     Active Substance: THIOCOLCHICOSIDE
     Route: 048
     Dates: start: 20101213
  31. MIOREL (THIOCOLCHICOSIDE) [Concomitant]
     Active Substance: THIOCOLCHICOSIDE
     Route: 048
     Dates: start: 20100606
  32. MIOREL (THIOCOLCHICOSIDE) [Concomitant]
     Active Substance: THIOCOLCHICOSIDE
     Route: 048
     Dates: start: 20110201

REACTIONS (24)
  - Musculoskeletal pain [Unknown]
  - Post-traumatic stress disorder [Recovered/Resolved]
  - Hypoacusis [Recovered/Resolved]
  - Hallucination, auditory [Recovered/Resolved]
  - Visual impairment [Recovered/Resolved]
  - Suicidal ideation [Recovered/Resolved]
  - Pain in extremity [Unknown]
  - Neurosis [Recovered/Resolved]
  - Panic attack [Recovered/Resolved]
  - Erectile dysfunction [Recovering/Resolving]
  - Malaise [Recovered/Resolved]
  - Personal relationship issue [Recovered/Resolved]
  - Tachycardia [Recovered/Resolved]
  - Agoraphobia [Recovered/Resolved]
  - Dyspnoea [Unknown]
  - Intervertebral disc disorder [Unknown]
  - Asthenia [Unknown]
  - Memory impairment [Recovered/Resolved]
  - Anxiety [Recovered/Resolved]
  - Drug intolerance [Recovering/Resolving]
  - Psychotic disorder [Recovered/Resolved]
  - Adverse event [Unknown]
  - Tinnitus [Recovered/Resolved]
  - Hypertonia [Unknown]

NARRATIVE: CASE EVENT DATE: 2010
